FAERS Safety Report 10163497 (Version 2)
Quarter: 2014Q2

REPORT INFORMATION
  Report Type: Spontaneous
  Country: US (occurrence: US)
  Receive Date: 20140509
  Receipt Date: 20140509
  Transmission Date: 20141212
  Serious: Yes (Hospitalization, Other)
  Sender: FDA-Public Use
  Company Number: US-ELI_LILLY_AND_COMPANY-US201405000125

PATIENT
  Sex: Female

DRUGS (5)
  1. HUMALOG LISPRO [Suspect]
     Indication: TYPE 2 DIABETES MELLITUS
     Dosage: UNK UNK, PRN
  2. HUMALOG LISPRO [Suspect]
     Dosage: UNK, PRN
  3. HUMALOG LISPRO [Suspect]
     Dosage: UNK, PRN
  4. LEVEMIR [Concomitant]
     Indication: TYPE 2 DIABETES MELLITUS
     Dosage: UNK, EACH EVENING
  5. METFORMIN [Concomitant]
     Indication: TYPE 2 DIABETES MELLITUS

REACTIONS (8)
  - Brain neoplasm [Unknown]
  - Renal disorder [Recovered/Resolved]
  - Blood glucose decreased [Unknown]
  - Vertigo [Unknown]
  - Influenza like illness [Unknown]
  - Decreased appetite [Unknown]
  - Weight decreased [Recovering/Resolving]
  - Asthenia [Recovering/Resolving]
